FAERS Safety Report 16922677 (Version 1)
Quarter: 2019Q4

REPORT INFORMATION
  Report Type: Spontaneous
  Country: FI (occurrence: FI)
  Receive Date: 20191016
  Receipt Date: 20191016
  Transmission Date: 20200122
  Serious: Yes (Death)
  Sender: FDA-Public Use
  Company Number: FI-ROCHE-2432369

PATIENT
  Age: 74 Year
  Sex: Male

DRUGS (20)
  1. IPRAMOL [Concomitant]
     Active Substance: ALBUTEROL SULFATE\IPRATROPIUM BROMIDE
     Dosage: ,,AS NECESSARY
     Route: 055
  2. CEFTRIAXON FRESENIUS KABI [Concomitant]
     Dosage: 2,G,DAILY
     Route: 042
     Dates: start: 20190909, end: 20190914
  3. MUCOMYST [ACETYLCYSTEINE] [Concomitant]
     Dosage: 600,MG,DAILY
     Route: 048
     Dates: start: 20190909, end: 20190913
  4. INNOHEP [Concomitant]
     Active Substance: TINZAPARIN SODIUM
     Dosage: 3500,IU,DAILY
     Route: 058
     Dates: start: 20190909, end: 20190913
  5. ALBUMAN [Concomitant]
     Active Substance: ALBUMIN HUMAN
     Route: 042
     Dates: start: 20190912, end: 20190913
  6. METRONIDAZOLE. [Concomitant]
     Active Substance: METRONIDAZOLE
     Dosage: 1500,MG,DAILY
     Route: 042
     Dates: start: 20190911, end: 20190914
  7. CARDACE [RAMIPRIL] [Concomitant]
     Dosage: 10,MG,DAILY
     Route: 048
     Dates: start: 20190516, end: 20190909
  8. MORPHINE [Concomitant]
     Active Substance: MORPHINE
     Route: 041
     Dates: start: 20190913, end: 20190914
  9. OXYNORM [Concomitant]
     Active Substance: OXYCODONE HYDROCHLORIDE
     Dosage: ,,AS NECESSARY
     Route: 048
     Dates: start: 20190909, end: 20190912
  10. DEXAMETASON [DEXAMETHASONE] [Concomitant]
     Active Substance: DEXAMETHASONE
     Dosage: 6,MG,DAILY
     Route: 048
     Dates: start: 20190811, end: 20190912
  11. HYDREX [HYDROCHLOROTHIAZIDE] [Concomitant]
     Dosage: 25,MG,DAILY
     Route: 048
     Dates: start: 20190611, end: 20190909
  12. ATIVAN [Concomitant]
     Active Substance: LORAZEPAM
     Route: 042
     Dates: start: 20190912, end: 20190913
  13. ALECENSA [Suspect]
     Active Substance: ALECTINIB HYDROCHLORIDE
     Indication: LUNG NEOPLASM MALIGNANT
     Route: 048
     Dates: start: 20190902, end: 20190909
  14. KEPPRA [Concomitant]
     Active Substance: LEVETIRACETAM
     Dosage: 2,G,DAILY
     Route: 048
     Dates: start: 20190808, end: 20190911
  15. LEVETIRACETAM. [Concomitant]
     Active Substance: LEVETIRACETAM
     Dosage: 2,G,DAILY
     Route: 042
     Dates: start: 20190912, end: 20190914
  16. SOLU-MEDROL [Concomitant]
     Active Substance: METHYLPREDNISOLONE SODIUM SUCCINATE
     Route: 042
     Dates: start: 20190912, end: 20190914
  17. PANADOL FORTE [CAFFEINE;PARACETAMOL] [Concomitant]
     Dosage: ,,AS NECESSARY
     Route: 048
  18. ATORVASTATIN PFIZER [Concomitant]
     Active Substance: ATORVASTATIN
     Dosage: 20,MG,DAILY
     Route: 048
     Dates: start: 20180111, end: 20190909
  19. SOMAC [Concomitant]
     Active Substance: PANTOPRAZOLE SODIUM
     Dosage: 40,MG,DAILY
     Route: 048
     Dates: start: 20190810, end: 20190912
  20. NOVORAPID [Concomitant]
     Active Substance: INSULIN ASPART
     Dosage: ,,AS NECESSARY
     Route: 058

REACTIONS (10)
  - Atelectasis [Fatal]
  - Pneumonia [Fatal]
  - Hypotension [Fatal]
  - Dyspnoea [Fatal]
  - Renal failure [Fatal]
  - Sepsis [Fatal]
  - Respiratory failure [Fatal]
  - Sputum increased [Fatal]
  - Electrolyte imbalance [Fatal]
  - Hyperkalaemia [Fatal]

NARRATIVE: CASE EVENT DATE: 20190903
